FAERS Safety Report 25441260 (Version 1)
Quarter: 2025Q2

REPORT INFORMATION
  Report Type: Report from Study
  Country: US (occurrence: None)
  Receive Date: 20250616
  Receipt Date: 20250616
  Transmission Date: 20250716
  Serious: Yes (Other)
  Sender: ALEXION PHARMACEUTICALS
  Company Number: 202506USA011359US

PATIENT
  Age: 52 Year

DRUGS (1)
  1. STRENSIQ [Suspect]
     Active Substance: ASFOTASE ALFA
     Indication: Phosphorus metabolism disorder
     Dosage: 1 MILLIGRAM/KILOGRAM, SIX TIMES/WEEK

REACTIONS (1)
  - Pneumonia [Unknown]
